FAERS Safety Report 13603378 (Version 1)
Quarter: 2017Q2

REPORT INFORMATION
  Report Type: Spontaneous
  Country: US (occurrence: US)
  Receive Date: 20170601
  Receipt Date: 20170601
  Transmission Date: 20170912
  Serious: No
  Sender: FDA-Public Use
  Company Number: US-OTSUKA-2016_011819

PATIENT
  Age: 90 Year
  Sex: Male

DRUGS (3)
  1. SAMSCA [Suspect]
     Indication: HYPONATRAEMIA
     Dosage: 15 MG, 5 TIMES A WEEK (MONDAY TO FRIDAY)
     Route: 065
     Dates: start: 20160419
  2. SAMSCA [Suspect]
     Dosage: 15 MG, QOD
     Route: 065
     Dates: start: 20160525
  3. SAMSCA [Suspect]
     Indication: BLOOD OSMOLARITY DECREASED
     Dosage: UNK
     Route: 065

REACTIONS (3)
  - No adverse event [Unknown]
  - Inappropriate schedule of drug administration [Unknown]
  - Incorrect drug administration duration [Unknown]

NARRATIVE: CASE EVENT DATE: 20160419
